FAERS Safety Report 6026256-X (Version None)
Quarter: 2008Q4

REPORT INFORMATION
  Report Type: 
  Country: None (occurrence: None)
  Receive Date: 20081230
  Receipt Date: 20081217
  Transmission Date: 20090506
  Serious: Yes (Disabling)
  Sender: FDA-Public Use
  Company Number: 100#03#2008-06243

PATIENT
  Age: 60 Year
  Sex: Female

DRUGS (6)
  1. SIMVASTATIN [Suspect]
     Indication: HYPERLIPIDAEMIA
     Dosage: 20 MG ORAL
     Route: 048
     Dates: start: 20071001, end: 20080907
  2. PRAVASTATIN [Suspect]
     Indication: HYPERLIPIDAEMIA
     Dosage: 10 MG ORAL
     Route: 048
     Dates: start: 20081103, end: 20081106
  3. GLUCOSAMINE (GLUCOSAMINE) [Concomitant]
  4. DEVILS CLAW (HARPAGOPHYTUM PROCUMBENS) [Concomitant]
  5. SOYA LECTHIN (LECITHIN) [Concomitant]
  6. MSN (UNKNOWN) [Concomitant]

REACTIONS (2)
  - ANXIETY [None]
  - PALPITATIONS [None]
